FAERS Safety Report 9732901 (Version 2)
Quarter: 2013Q4

REPORT INFORMATION
  Report Type: Spontaneous
  Country: US (occurrence: US)
  Receive Date: 20131204
  Receipt Date: 20131204
  Transmission Date: 20140711
  Serious: No
  Sender: FDA-Public Use
  Company Number: US-GILEAD-2009-0021412

PATIENT
  Age: 72 Year
  Sex: Male
  Weight: 86.18 kg

DRUGS (15)
  1. LETAIRIS [Suspect]
     Indication: PULMONARY ARTERIAL HYPERTENSION
     Route: 048
     Dates: start: 20080911
  2. ATENOLOL [Concomitant]
  3. ALTACE [Concomitant]
  4. NORVASC [Concomitant]
  5. WARFARIN SODIUM [Concomitant]
  6. ZOCOR [Concomitant]
  7. ASPIRIN [Concomitant]
  8. COMBIVENT [Concomitant]
  9. NASONEX [Concomitant]
  10. OXYGEN [Concomitant]
  11. AFRIN [Concomitant]
  12. ASTELIN [Concomitant]
  13. ACTOS [Concomitant]
  14. OMEPRAZOLE [Concomitant]
  15. VITAMIN B [Concomitant]

REACTIONS (2)
  - Ear infection [Unknown]
  - Sinusitis [Unknown]
